FAERS Safety Report 6548549-X (Version None)
Quarter: 2010Q1

REPORT INFORMATION
  Report Type: 
  Country: None (occurrence: None)
  Receive Date: 20100124
  Receipt Date: 20090825
  Transmission Date: 20100710
  Serious: No
  Sender: FDA-Public Use
  Company Number: US-ALLERGAN-0911823US

PATIENT
  Age: 73 Year
  Sex: Female

DRUGS (4)
  1. RESTASIS [Suspect]
     Indication: DRY EYE
     Dosage: UNK
     Route: 047
     Dates: start: 20090801
  2. RESTASIS [Suspect]
     Dosage: UNK
     Route: 047
     Dates: start: 20090708, end: 20090801
  3. RESTASIS [Suspect]
     Dosage: UNK
     Route: 047
  4. CELLUVISC [Concomitant]

REACTIONS (3)
  - ARTHRITIS [None]
  - INCORRECT DOSE ADMINISTERED [None]
  - PAIN IN EXTREMITY [None]
